FAERS Safety Report 7465948-2 (Version None)
Quarter: 2011Q2

REPORT INFORMATION
  Report Type: 
  Country: None (occurrence: None)
  Receive Date: 20110509
  Receipt Date: 20110427
  Transmission Date: 20111010
  Serious: Yes (Hospitalization)
  Sender: FDA-Public Use
  Company Number: AU-TEVA-275380ISR

PATIENT
  Sex: Female
  Weight: 54.5 kg

DRUGS (6)
  1. LENALIDOMIDE [Suspect]
     Dosage: 10 MILLIGRAM;
     Route: 048
     Dates: start: 20110224, end: 20110317
  2. DEXAMETHASONE [Suspect]
     Dates: start: 20110224, end: 20110319
  3. ANTITHROMBOTIC AGENTS [Concomitant]
     Indication: PROPHYLAXIS
  4. DEXAMETHASONE [Suspect]
     Indication: MULTIPLE MYELOMA
     Dates: start: 20100521
  5. LENALIDOMIDE [Suspect]
     Indication: MULTIPLE MYELOMA
     Route: 048
     Dates: start: 20100521
  6. PAMIDRONATE DISODIUM [Concomitant]

REACTIONS (1)
  - RENAL IMPAIRMENT [None]
